FAERS Safety Report 19959542 (Version 1)
Quarter: 2021Q4

REPORT INFORMATION
  Report Type: Spontaneous
  Country: US (occurrence: US)
  Receive Date: 20211014
  Receipt Date: 20211014
  Transmission Date: 20220303
  Serious: Yes (Disabling)
  Sender: FDA-Public Use
  Company Number: None

PATIENT

DRUGS (1)
  1. PREGABALIN [Suspect]
     Active Substance: PREGABALIN

REACTIONS (2)
  - Sensory disturbance [None]
  - Musculoskeletal disorder [None]
